FAERS Safety Report 11256171 (Version 1)
Quarter: 2015Q3

REPORT INFORMATION
  Report Type: Spontaneous
  Country: US (occurrence: US)
  Receive Date: 20150709
  Receipt Date: 20150709
  Transmission Date: 20151125
  Serious: No
  Sender: FDA-Public Use
  Company Number: US-VIIV HEALTHCARE LIMITED-A1086213A

PATIENT
  Sex: Male

DRUGS (1)
  1. COMBIVIR [Suspect]
     Active Substance: LAMIVUDINE\ZIDOVUDINE
     Indication: PRODUCT USED FOR UNKNOWN INDICATION
     Dosage: 150/300MG
     Route: 065
     Dates: end: 20140807

REACTIONS (4)
  - Inability to afford medication [Unknown]
  - Malaise [Unknown]
  - Drug dose omission [Unknown]
  - Treatment noncompliance [Unknown]
